FAERS Safety Report 5429817-1 (Version None)
Quarter: 2007Q3

REPORT INFORMATION
  Report Type: 
  Country: None (occurrence: None)
  Receive Date: 20070827
  Receipt Date: 20070818
  Transmission Date: 20080115
  Serious: Yes (Hospitalization)
  Sender: FDA-Public Use
  Company Number: 070817-0000776

PATIENT
  Age: 9 Year
  Sex: Male

DRUGS (4)
  1. INDOCIN I.V. [Suspect]
     Indication: ARTHRALGIA
     Dosage: 3 MG/KG; QD;
  2. CLONIDINE [Concomitant]
  3. ACETAMINOPHEN [Concomitant]
  4. CODEINE SUL TAB [Concomitant]

REACTIONS (2)
  - RASH [None]
  - VITAMIN C DEFICIENCY [None]
